FAERS Safety Report 16061664 (Version 3)
Quarter: 2019Q2

REPORT INFORMATION
  Report Type: Spontaneous
  Country: GR (occurrence: GR)
  Receive Date: 20190312
  Receipt Date: 20190403
  Transmission Date: 20190711
  Serious: Yes (Life-Threatening, Hospitalization, Other)
  Sender: FDA-Public Use
  Company Number: GR-AUROBINDO-09-AUR-09185

PATIENT

DRUGS (6)
  1. MIRTAZAPINE ORALLY DISINTEGRATING TABLETS 30MG [Suspect]
     Active Substance: MIRTAZAPINE
     Dosage: 60 MILLIGRAM, ONCE A DAY, 2 DAYS BEFORE THE  INCIDENT, MIRTAZAPINE WAS INCREASED TO 60 MG.
     Route: 065
  2. ZYPREXA [Interacting]
     Active Substance: OLANZAPINE
     Indication: PSYCHOTIC DISORDER
     Dosage: 30 MILLIGRAM
     Route: 065
  3. MIRTAZAPINE ORALLY DISINTEGRATING TABLETS 30MG [Suspect]
     Active Substance: MIRTAZAPINE
     Dosage: 240 MILLIGRAM, ONCE A DAY
     Route: 065
  4. ZYPREXA [Interacting]
     Active Substance: OLANZAPINE
     Dosage: 10 MILLIGRAM
     Route: 065
  5. QUETIAPINE. [Concomitant]
     Active Substance: QUETIAPINE
     Indication: PSYCHOTIC DISORDER
     Dosage: 600 MILLIGRAM, UNKNOWN
     Route: 065
  6. MIRTAZAPINE ORALLY DISINTEGRATING TABLETS 30MG [Suspect]
     Active Substance: MIRTAZAPINE
     Indication: PSYCHOTIC DISORDER
     Dosage: 30 MILLIGRAM, ONCE A DAY, DAILY (1/D)
     Route: 048

REACTIONS (4)
  - Overdose [Recovered/Resolved]
  - Generalised tonic-clonic seizure [Recovered/Resolved]
  - Drug interaction [Recovered/Resolved]
  - Status epilepticus [Recovered/Resolved]
